FAERS Safety Report 21408830 (Version 1)
Quarter: 2022Q4

REPORT INFORMATION
  Report Type: Report from Study
  Country: US (occurrence: US)
  Receive Date: 20221004
  Receipt Date: 20221004
  Transmission Date: 20230113
  Serious: Yes (Hospitalization, Other)
  Sender: FDA-Public Use
  Company Number: US-GILEAD-2022-0600213

PATIENT
  Age: 52 Year
  Sex: Female
  Weight: 45.7 kg

DRUGS (2)
  1. SACITUZUMAB GOVITECAN [Suspect]
     Active Substance: SACITUZUMAB GOVITECAN
     Indication: Breast cancer metastatic
     Dosage: 10 MG/KG DAY 1 AND 8 OF 21 DAY CYCLE
     Route: 042
     Dates: start: 20220629
  2. PEMBROLIZUMAB [Suspect]
     Active Substance: PEMBROLIZUMAB
     Indication: Breast cancer metastatic
     Dosage: 200 MG DAY 1 OF 21 DAY CYCLE
     Route: 042
     Dates: start: 20220629

REACTIONS (2)
  - Cardiac failure [Unknown]
  - Bacteraemia [Unknown]

NARRATIVE: CASE EVENT DATE: 20220930
